FAERS Safety Report 16945684 (Version 1)
Quarter: 2019Q4

REPORT INFORMATION
  Report Type: Spontaneous
  Country: US (occurrence: US)
  Receive Date: 20191022
  Receipt Date: 20191022
  Transmission Date: 20200122
  Serious: Yes (Other)
  Sender: FDA-Public Use
  Company Number: US-MYLANLABS-2019M1099213

PATIENT
  Age: 39 Year
  Sex: Male
  Weight: 102 kg

DRUGS (1)
  1. EPINEPHRINE. [Suspect]
     Active Substance: EPINEPHRINE
     Indication: FOOD ALLERGY
     Dosage: UNK
     Route: 065
     Dates: start: 20191005, end: 20191005

REACTIONS (6)
  - Shock [Unknown]
  - Vomiting [Unknown]
  - Hypoaesthesia [Unknown]
  - Nausea [Recovered/Resolved]
  - Hyperventilation [Unknown]
  - Palpitations [Unknown]

NARRATIVE: CASE EVENT DATE: 20191005
